FAERS Safety Report 25039879 (Version 1)
Quarter: 2025Q1

REPORT INFORMATION
  Report Type: Spontaneous
  Country: DE (occurrence: DE)
  Receive Date: 20250305
  Receipt Date: 20250305
  Transmission Date: 20250409
  Serious: Yes (Hospitalization, Other)
  Sender: ROCHE
  Company Number: DE-ROCHE-10000220965

PATIENT
  Age: 20 Year
  Sex: Female

DRUGS (3)
  1. OCRELIZUMAB [Suspect]
     Active Substance: OCRELIZUMAB
     Indication: Multiple sclerosis
     Route: 065
     Dates: end: 202309
  2. BUDESONIDE [Concomitant]
     Active Substance: BUDESONIDE
     Dates: start: 202403
  3. AZATHIOPRINE [Concomitant]
     Active Substance: AZATHIOPRINE
     Dates: start: 202405

REACTIONS (8)
  - Pneumonia [Unknown]
  - Enterovirus infection [Unknown]
  - Pneumocystis jirovecii infection [Unknown]
  - Herpes simplex [Unknown]
  - Echovirus test positive [Unknown]
  - Sepsis [Unknown]
  - Deafness [Not Recovered/Not Resolved]
  - Hypogammaglobulinaemia [Unknown]
